FAERS Safety Report 8953417 (Version 1)
Quarter: 2012Q4

REPORT INFORMATION
  Report Type: Report from Study
  Country: DE (occurrence: DE)
  Receive Date: 20121206
  Receipt Date: 20121206
  Transmission Date: 20130627
  Serious: Yes (Hospitalization)
  Sender: FDA-Public Use
  Company Number: DE-ROCHE-730027

PATIENT
  Age: 74 Year
  Sex: Female
  Weight: 77 kg

DRUGS (4)
  1. BEVACIZUMAB [Suspect]
     Indication: BREAST CANCER
     Dosage: ON DAY 1, DOSE AS PER PROTOCOL, 28/Jul/2010, last dose
     Route: 042
  2. CAPECITABINE [Suspect]
     Indication: BREAST CANCER
     Dosage: DAYS 1 -14, DOSE AS PER PROTOCOL,last dose 30-jul-2010
     Route: 048
  3. MCP [Concomitant]
     Route: 065
     Dates: start: 20100728, end: 20100730
  4. ONDANSETRON [Concomitant]
     Route: 065
     Dates: start: 20100728, end: 20100730

REACTIONS (1)
  - General physical health deterioration [Recovered/Resolved]
